FAERS Safety Report 9471169 (Version 4)
Quarter: 2013Q4

REPORT INFORMATION
  Report Type: Report from Study
  Country: CA (occurrence: CA)
  Receive Date: 20130822
  Receipt Date: 20131015
  Transmission Date: 20140711
  Serious: Yes (Other)
  Sender: FDA-Public Use
  Company Number: CA-JNJFOC-20130809661

PATIENT
  Age: 51 Year
  Sex: Female
  Weight: 77.9 kg

DRUGS (6)
  1. REMICADE [Suspect]
     Indication: RHEUMATOID ARTHRITIS
     Route: 042
     Dates: start: 20130709
  2. REMICADE [Suspect]
     Indication: RHEUMATOID ARTHRITIS
     Route: 042
     Dates: start: 20120518
  3. ELAVIL [Concomitant]
     Route: 065
  4. PERCOCET [Concomitant]
     Route: 065
  5. METHOTREXATE [Concomitant]
     Route: 065
  6. PREDNISONE [Concomitant]
     Route: 031

REACTIONS (2)
  - Sarcoidosis [Unknown]
  - Back pain [Unknown]
